FAERS Safety Report 15482934 (Version 2)
Quarter: 2019Q1

REPORT INFORMATION
  Report Type: Spontaneous
  Country: US (occurrence: US)
  Receive Date: 20181010
  Receipt Date: 20190307
  Transmission Date: 20190417
  Serious: No
  Sender: FDA-Public Use
  Company Number: US-PFIZER INC-2018406457

PATIENT
  Age: 28 Year
  Sex: Female

DRUGS (1)
  1. EUCRISA [Suspect]
     Active Substance: CRISABOROLE
     Indication: SKIN IRRITATION
     Dosage: AS NEEDED (ONE APPLICATION TWO TIMES A DAY AS NEEDED)
     Route: 061

REACTIONS (1)
  - Pain of skin [Unknown]
